FAERS Safety Report 11411033 (Version 1)
Quarter: 2015Q3

REPORT INFORMATION
  Report Type: Spontaneous
  Country: US (occurrence: US)
  Receive Date: 20150821
  Receipt Date: 20150821
  Transmission Date: 20151125
  Serious: No
  Sender: FDA-Public Use
  Company Number: US-ELI_LILLY_AND_COMPANY-US201002003842

PATIENT
  Age: 89 Year
  Sex: Male

DRUGS (10)
  1. DIAMITEX [Concomitant]
  2. HUMULIN N [Suspect]
     Active Substance: INSULIN HUMAN
     Indication: DIABETES MELLITUS
     Dosage: 16 U, EACH MORNING
  3. CELEBREX [Concomitant]
     Active Substance: CELECOXIB
  4. LESCOL [Concomitant]
     Active Substance: FLUVASTATIN SODIUM
  5. COUMADIN [Concomitant]
     Active Substance: WARFARIN SODIUM
  6. TOOPRIN [Concomitant]
  7. POTASSIUM [Concomitant]
     Active Substance: POTASSIUM
  8. HUMULIN N [Suspect]
     Active Substance: INSULIN HUMAN
     Dosage: 14 U, EACH EVENING
  9. BETAPACE [Concomitant]
     Active Substance: SOTALOL HYDROCHLORIDE
  10. FLOMAX [Concomitant]
     Active Substance: TAMSULOSIN HYDROCHLORIDE

REACTIONS (1)
  - Hypoacusis [Not Recovered/Not Resolved]

NARRATIVE: CASE EVENT DATE: 200912
